FAERS Safety Report 6775091-3 (Version None)
Quarter: 2010Q2

REPORT INFORMATION
  Report Type: 
  Country: None (occurrence: None)
  Receive Date: 20100617
  Receipt Date: 20100610
  Transmission Date: 20101027
  Serious: Yes (Hospitalization)
  Sender: FDA-Public Use
  Company Number: B0660587A

PATIENT
  Age: 14 Year

DRUGS (2)
  1. ZOVIRAX [Suspect]
     Indication: ENCEPHALITIS HERPES
     Route: 042
  2. IV FLUIDS [Concomitant]
     Dosage: 200ML PER DAY
     Route: 042

REACTIONS (1)
  - RENAL IMPAIRMENT [None]
